FAERS Safety Report 14914814 (Version 1)
Quarter: 2018Q2

REPORT INFORMATION
  Report Type: Spontaneous
  Country: US (occurrence: US)
  Receive Date: 20180501
  Receipt Date: 20180501
  Transmission Date: 20180711
  Serious: No
  Sender: FDA-Public Use
  Company Number: None

PATIENT
  Age: 47 Year
  Sex: Female

DRUGS (1)
  1. SUTENT [Suspect]
     Active Substance: SUNITINIB MALATE

REACTIONS (5)
  - Skin fissures [None]
  - Dysgeusia [None]
  - Glossodynia [None]
  - Lip pain [None]
  - Lip erythema [None]

NARRATIVE: CASE EVENT DATE: 20180501
